FAERS Safety Report 4318241-0 (Version None)
Quarter: 2004Q1

REPORT INFORMATION
  Report Type: 
  Country: None (occurrence: None)
  Receive Date: 20040315
  Receipt Date: 20040223
  Transmission Date: 20041129
  Serious: Yes (Hospitalization)
  Sender: FDA-Public Use
  Company Number: 2003-110856-NL

PATIENT
  Age: 43 Year
  Sex: Male

DRUGS (4)
  1. VECURONIUM BROMIDE [Suspect]
     Indication: INDUCTION OF ANAESTHESIA
     Dosage: 8 MG QD/1 MG QD INTRAVENOUS (NOS)
     Route: 042
     Dates: start: 20030917, end: 20030917
  2. VECURONIUM BROMIDE [Suspect]
     Indication: INDUCTION OF ANAESTHESIA
     Dosage: 8 MG QD/1 MG QD INTRAVENOUS (NOS)
     Route: 042
     Dates: start: 20031021, end: 20031021
  3. PROPOFOL [Concomitant]
  4. MIDAZOLAM HYDROCHLORIDE [Concomitant]

REACTIONS (4)
  - ANAESTHETIC COMPLICATION [None]
  - ANAPHYLACTIC SHOCK [None]
  - LARYNGOSPASM [None]
  - VOMITING [None]
